FAERS Safety Report 19222688 (Version 3)
Quarter: 2021Q3

REPORT INFORMATION
  Report Type: Report from Study
  Country: None (occurrence: US)
  Receive Date: 20210505
  Receipt Date: 20210730
  Transmission Date: 20211014
  Serious: Yes (Hospitalization)
  Sender: FDA-Public Use
  Company Number: US-ABBVIE-21P-163-3881218-00

PATIENT
  Age: 11 Year
  Sex: Male
  Weight: 23.6 kg

DRUGS (16)
  1. VENETOCLAX. [Suspect]
     Active Substance: VENETOCLAX
     Indication: REFRACTORY CANCER
     Dosage: DAYS 1?10 OF 21 DAY CYCLE
     Route: 048
     Dates: start: 20210414, end: 20210422
  2. BENADRYL [Concomitant]
     Active Substance: DIPHENHYDRAMINE HYDROCHLORIDE
     Indication: RASH
  3. DEXTROSE IN WATER [Concomitant]
     Active Substance: DEXTROSE\WATER
     Indication: PROPHYLAXIS
     Dates: start: 20210415, end: 20210416
  4. TYLENOL [Concomitant]
     Active Substance: ACETAMINOPHEN
     Indication: PREMEDICATION
  5. VENETOCLAX. [Suspect]
     Active Substance: VENETOCLAX
     Dosage: DAYS 1?10 OF 21 DAY CYCLE
     Route: 048
     Dates: start: 20210524
  6. CYCLOPHOSPHAMIDE. [Suspect]
     Active Substance: CYCLOPHOSPHAMIDE
     Indication: REFRACTORY CANCER
     Dosage: MAXIMUM OF 5 DAYS EVERY 21 DAYS
     Route: 042
     Dates: start: 20210524
  7. TOPOTECAN HYDROCHLORIDE. [Suspect]
     Active Substance: TOPOTECAN HYDROCHLORIDE
     Indication: RECURRENT CANCER
     Dosage: MAXIMUM OF 5 DAYS EVERY 21 DAYS
     Route: 042
     Dates: start: 20210415, end: 20210419
  8. ZOFRAN [Concomitant]
     Active Substance: ONDANSETRON HYDROCHLORIDE
     Indication: NAUSEA
     Route: 048
     Dates: start: 20210413
  9. TYLENOL [Concomitant]
     Active Substance: ACETAMINOPHEN
     Indication: PACKED RED BLOOD CELL TRANSFUSION
     Route: 048
     Dates: start: 20210417
  10. TOPOTECAN HYDROCHLORIDE. [Suspect]
     Active Substance: TOPOTECAN HYDROCHLORIDE
     Indication: REFRACTORY CANCER
     Dosage: MAXIMUM OF 5 DAYS EVERY 21 DAYS
     Route: 042
     Dates: start: 20210524
  11. VENETOCLAX. [Suspect]
     Active Substance: VENETOCLAX
     Indication: RECURRENT CANCER
     Dosage: DAYS 1?10 OF 21 DAY CYCLE
     Route: 048
     Dates: start: 20210413, end: 20210413
  12. CYCLOPHOSPHAMIDE. [Suspect]
     Active Substance: CYCLOPHOSPHAMIDE
     Indication: RECURRENT CANCER
     Dosage: MAXIMUM OF 5 DAYS EVERY 21 DAYS
     Route: 042
     Dates: start: 20210415, end: 20210419
  13. SCOPOLAMINE [Concomitant]
     Active Substance: SCOPOLAMINE
     Indication: NAUSEA
     Route: 058
     Dates: start: 20210413
  14. SODIUM CHLORIDE. [Concomitant]
     Active Substance: SODIUM CHLORIDE
     Indication: DEHYDRATION
     Route: 040
     Dates: start: 20210415
  15. ALLOPURINOL. [Concomitant]
     Active Substance: ALLOPURINOL
     Indication: PROPHYLAXIS
     Dates: start: 20210420, end: 20210506
  16. BENADRYL [Concomitant]
     Active Substance: DIPHENHYDRAMINE HYDROCHLORIDE
     Indication: NAUSEA
     Route: 048
     Dates: start: 20210413

REACTIONS (6)
  - Stomatitis [Not Recovered/Not Resolved]
  - Sepsis [Recovered/Resolved]
  - Anaemia [Not Recovered/Not Resolved]
  - Platelet count decreased [Not Recovered/Not Resolved]
  - White blood cell count decreased [Not Recovered/Not Resolved]
  - Neutrophil count decreased [Not Recovered/Not Resolved]

NARRATIVE: CASE EVENT DATE: 20210416
